FAERS Safety Report 9564436 (Version 3)
Quarter: 2013Q4

REPORT INFORMATION
  Report Type: Spontaneous
  Country: IE (occurrence: IE)
  Receive Date: 20130930
  Receipt Date: 20131211
  Transmission Date: 20140711
  Serious: Yes (Other)
  Sender: FDA-Public Use
  Company Number: IE-AMGEN-IRLSP2013068367

PATIENT
  Age: 79 Year
  Sex: Female
  Weight: 54 kg

DRUGS (8)
  1. PROLIA [Suspect]
     Indication: OSTEOPOROSIS
     Dosage: 60 MG, QD
     Route: 058
     Dates: start: 20120116
  2. FUROSEMIDE [Concomitant]
     Dosage: 20 UNK, UNK
  3. LIPITOR [Concomitant]
     Dosage: 10 UNK, UNK
  4. GLUCOPHAGE [Concomitant]
     Dosage: 50,  BID
  5. ELTROXIN [Concomitant]
     Indication: OSTEOPOROSIS
     Dosage: 50 MUG, UNK
  6. ANILIDES [Concomitant]
     Dosage: 5 MUG, UNK
  7. COZAAR [Concomitant]
     Dosage: 50 MUG, UNK
  8. EMESET [Concomitant]
     Dosage: 5 MUG, UNK

REACTIONS (6)
  - Sneezing [Recovered/Resolved]
  - Cough [Recovered/Resolved]
  - Vomiting [Recovered/Resolved]
  - Pain [Recovered/Resolved]
  - Upper respiratory tract infection [Recovered/Resolved]
  - Lower respiratory tract infection [Recovered/Resolved]
